FAERS Safety Report 4517700-5 (Version None)
Quarter: 2004Q4

REPORT INFORMATION
  Report Type: 
  Country: None (occurrence: None)
  Receive Date: 20041203
  Receipt Date: 20041123
  Transmission Date: 20050328
  Serious: Yes (Hospitalization)
  Sender: FDA-Public Use
  Company Number: US-BRISTOL-MYERS SQUIBB COMPANY-12773008

PATIENT
  Age: 60 Year
  Sex: Female
  Weight: 50 kg

DRUGS (6)
  1. IXABEPILONE [Suspect]
     Indication: BREAST CANCER METASTATIC
     Dosage: INITIAL DOSE. ADM ON DAYS 1, 8 AND 15, Q28 DAYS DURING CYLES 1-6. TOTAL DOSE ADM:66MG.
     Route: 042
     Dates: start: 20041019, end: 20041019
  2. CARBOPLATIN [Suspect]
     Indication: BREAST CANCER METASTATIC
     Dosage: INITIAL DOSE. ADM: ON DAYS 1, 8 + 15 Q28 DAYS DURING CYCLE 1-6. AUC 2 (TOTAL DOSE: 624 MG)
     Route: 042
     Dates: start: 20041019, end: 20041019
  3. TRASTUZUMAB [Suspect]
     Indication: BREAST CANCER METASTATIC
     Dosage: 4 MG/KG ADM DAY 1, WK 1 ONLY. 2MG/KG ADM DAY 1,8,15,22  TOTAL DOSE ADM: 300 MG
     Route: 042
     Dates: start: 20041019, end: 20041019
  4. DEXAMETHASONE [Concomitant]
  5. DILANTIN [Concomitant]
  6. PROTONIX [Concomitant]

REACTIONS (1)
  - HEADACHE [None]
